FAERS Safety Report 6775315-2 (Version None)
Quarter: 2010Q2

REPORT INFORMATION
  Report Type: 
  Country: None (occurrence: None)
  Receive Date: 20100615
  Receipt Date: 20100615
  Transmission Date: 20101027
  Serious: Yes (Other)
  Sender: FDA-Public Use
  Company Number: None

PATIENT
  Age: 18 Year
  Sex: Male
  Weight: 50.8029 kg

DRUGS (1)
  1. VIMPAT [Suspect]
     Indication: CONVULSION
     Dosage: 100-150 MG TWICE DAILY PO
     Route: 048
     Dates: start: 20100318, end: 20100608

REACTIONS (11)
  - AFFECTIVE DISORDER [None]
  - AGGRESSION [None]
  - ASTHENIA [None]
  - COORDINATION ABNORMAL [None]
  - EATING DISORDER [None]
  - FALL [None]
  - GAIT DISTURBANCE [None]
  - OBSESSIVE THOUGHTS [None]
  - SOMNOLENCE [None]
  - URINARY RETENTION [None]
  - URINARY TRACT INFECTION [None]
